FAERS Safety Report 22215777 (Version 2)
Quarter: 2023Q2

REPORT INFORMATION
  Report Type: Spontaneous
  Country: US (occurrence: None)
  Receive Date: 20230416
  Receipt Date: 20230514
  Transmission Date: 20230721
  Serious: No
  Sender: FDA-Public Use
  Company Number: 2023A066672

PATIENT
  Age: 909 Month
  Sex: Female
  Weight: 99.8 kg

DRUGS (2)
  1. BEVESPI AEROSPHERE [Suspect]
     Active Substance: FORMOTEROL FUMARATE\GLYCOPYRROLATE
     Indication: Chronic obstructive pulmonary disease
     Route: 055
     Dates: start: 20230303
  2. BEVESPI AEROSPHERE [Suspect]
     Active Substance: FORMOTEROL FUMARATE\GLYCOPYRROLATE
     Indication: Emphysema
     Route: 055
     Dates: start: 20230303

REACTIONS (9)
  - Cough [Not Recovered/Not Resolved]
  - Visual impairment [Not Recovered/Not Resolved]
  - Dyspnoea [Not Recovered/Not Resolved]
  - Device use issue [Unknown]
  - Device delivery system issue [Unknown]
  - Drug dose omission by device [Unknown]
  - Wrong technique in device usage process [Unknown]
  - Device malfunction [Unknown]
  - Product label confusion [Unknown]

NARRATIVE: CASE EVENT DATE: 20230301
